FAERS Safety Report 24090819 (Version 4)
Quarter: 2025Q1

REPORT INFORMATION
  Report Type: Report from Study
  Country: CO (occurrence: CO)
  Receive Date: 20240715
  Receipt Date: 20250215
  Transmission Date: 20250409
  Serious: Yes (Hospitalization, Other)
  Sender: UCB
  Company Number: CO-UCBSA-2024035523

PATIENT
  Age: 9 Year
  Sex: Male

DRUGS (7)
  1. LACOSAMIDE [Suspect]
     Active Substance: LACOSAMIDE
     Indication: Epilepsy
     Dosage: 10 MILLILITER, 3X/DAY (TID)
     Route: 048
     Dates: start: 20240208, end: 20240522
  2. LACOSAMIDE [Suspect]
     Active Substance: LACOSAMIDE
     Dosage: 10 MILLILITER, 2X/DAY (BID)
     Route: 048
     Dates: start: 20240727, end: 20240919
  3. LACOSAMIDE [Suspect]
     Active Substance: LACOSAMIDE
     Dosage: 20 MILLILITER, 2X/DAY (BID)
     Route: 048
     Dates: start: 20240920, end: 20240926
  4. LACOSAMIDE [Suspect]
     Active Substance: LACOSAMIDE
     Dosage: 20 MILLILITER, 2X/DAY (BID)
     Route: 048
     Dates: start: 20241218
  5. LACOSAMIDE [Suspect]
     Active Substance: LACOSAMIDE
     Indication: Epilepsy
     Route: 048
     Dates: start: 20240523, end: 20240726
  6. LEVETIRACETAM [Concomitant]
     Active Substance: LEVETIRACETAM
     Indication: Product used for unknown indication
     Route: 048
     Dates: start: 20230202
  7. LEVETIRACETAM [Concomitant]
     Active Substance: LEVETIRACETAM
     Indication: Product used for unknown indication
     Route: 042

REACTIONS (9)
  - Acute lymphocytic leukaemia [Not Recovered/Not Resolved]
  - Radiotherapy [Unknown]
  - Seizure [Unknown]
  - Bone marrow transplant [Recovered/Resolved]
  - Gastrointestinal hypomotility [Unknown]
  - Dehydration [Unknown]
  - Product availability issue [Unknown]
  - Wrong technique in product usage process [Unknown]
  - Therapy interrupted [Unknown]

NARRATIVE: CASE EVENT DATE: 20240301
